FAERS Safety Report 6864768-7 (Version None)
Quarter: 2010Q3

REPORT INFORMATION
  Report Type: 
  Country: None (occurrence: None)
  Receive Date: 20100721
  Receipt Date: 20080331
  Transmission Date: 20110219
  Serious: No
  Sender: FDA-Public Use
  Company Number: US-PFIZER INC-2008029396

PATIENT
  Sex: Male
  Weight: 70 kg

DRUGS (8)
  1. CHANTIX [Suspect]
     Indication: SMOKING CESSATION THERAPY
     Route: 048
     Dates: start: 20080301
  2. DILTIAZEM HYDROCHLORIDE [Concomitant]
  3. SELDANE [Concomitant]
  4. XANAX [Concomitant]
  5. NORTRIPTYLINE [Concomitant]
  6. RESTORIL [Concomitant]
  7. ADVAIR DISKUS 100/50 [Concomitant]
  8. LISINOPRIL [Concomitant]
     Indication: HYPERTENSION

REACTIONS (1)
  - SEXUAL DYSFUNCTION [None]
